FAERS Safety Report 14702496 (Version 1)
Quarter: 2018Q2

REPORT INFORMATION
  Report Type: Spontaneous
  Country: FR (occurrence: FR)
  Receive Date: 20180401
  Receipt Date: 20180401
  Transmission Date: 20180711
  Serious: Yes (Other)
  Sender: FDA-Public Use
  Company Number: FR-MERCK KGAA-2044844

PATIENT
  Age: 44 Year
  Sex: Female

DRUGS (1)
  1. NOVOTHYROX [Suspect]
     Active Substance: LEVOTHYROXINE SODIUM
     Indication: AUTOIMMUNE THYROIDITIS
     Dates: start: 2017

REACTIONS (16)
  - Abdominal pain [None]
  - Tension [None]
  - Social problem [None]
  - Loss of personal independence in daily activities [None]
  - Gastrointestinal motility disorder [None]
  - Blood pressure decreased [None]
  - Asthenia [None]
  - Presyncope [None]
  - Hyperthyroidism [None]
  - Appetite disorder [None]
  - Terminal insomnia [None]
  - Tri-iodothyronine decreased [None]
  - Headache [None]
  - Psychomotor retardation [None]
  - Mean cell haemoglobin concentration decreased [None]
  - Hot flush [None]

NARRATIVE: CASE EVENT DATE: 2017
